FAERS Safety Report 8009391-6 (Version None)
Quarter: 2011Q4

REPORT INFORMATION
  Report Type: 
  Country: None (occurrence: None)
  Receive Date: 20111227
  Receipt Date: 20111202
  Transmission Date: 20120403
  Serious: Yes (Hospitalization)
  Sender: FDA-Public Use
  Company Number: GB-ACTELION-A-CH2011-57931

PATIENT
  Sex: Female

DRUGS (1)
  1. TRACLEER [Suspect]
     Indication: PULMONARY ARTERIAL HYPERTENSION
     Route: 048

REACTIONS (10)
  - SEPSIS [None]
  - GROIN PAIN [None]
  - ABDOMINAL DISTENSION [None]
  - SINUSITIS [None]
  - ABSCESS DRAINAGE [None]
  - IMPAIRED HEALING [None]
  - GROIN ABSCESS [None]
  - WOUND SECRETION [None]
  - COUGH [None]
  - OXYGEN SATURATION DECREASED [None]
